FAERS Safety Report 19826712 (Version 1)
Quarter: 2021Q3

REPORT INFORMATION
  Report Type: Spontaneous
  Country: US (occurrence: US)
  Receive Date: 20210914
  Receipt Date: 20210914
  Transmission Date: 20211014
  Serious: Yes (Other)
  Sender: FDA-Public Use
  Company Number: US-SA-2021SA300109

PATIENT
  Age: 73 Year
  Sex: Male

DRUGS (2)
  1. ZANTAC [Suspect]
     Active Substance: RANITIDINE HYDROCHLORIDE
     Indication: DYSPEPSIA
  2. ZANTAC [Suspect]
     Active Substance: RANITIDINE HYDROCHLORIDE
     Indication: ABDOMINAL DISCOMFORT
     Dosage: 75 MG, QD
     Dates: start: 201209, end: 201308

REACTIONS (7)
  - Gastric cancer stage II [Recovering/Resolving]
  - Oesophageal carcinoma [Recovering/Resolving]
  - Skin cancer [Recovering/Resolving]
  - Gastrointestinal carcinoma [Recovering/Resolving]
  - Prostate cancer stage III [Recovering/Resolving]
  - Bladder cancer stage III [Unknown]
  - Colorectal cancer stage III [Recovering/Resolving]

NARRATIVE: CASE EVENT DATE: 20181101
